FAERS Safety Report 13930328 (Version 4)
Quarter: 2017Q4

REPORT INFORMATION
  Report Type: Report from Study
  Country: CA (occurrence: CA)
  Receive Date: 20170901
  Receipt Date: 20171109
  Transmission Date: 20180320
  Serious: Yes (Other)
  Sender: FDA-Public Use
  Company Number: PHHY2016CA151784

PATIENT
  Age: 65 Year
  Sex: Male

DRUGS (9)
  1. HYDROVAL [Concomitant]
     Active Substance: HYDROCORTISONE VALERATE
     Indication: PRODUCT USED FOR UNKNOWN INDICATION
     Route: 065
  2. COSENTYX [Suspect]
     Active Substance: SECUKINUMAB
     Indication: PSORIASIS
     Dosage: 300 MG, QW
     Route: 058
     Dates: start: 20161031, end: 20161121
  3. COSENTYX [Suspect]
     Active Substance: SECUKINUMAB
     Dosage: 300 MG, QMO
     Route: 058
     Dates: start: 20161128
  4. COSENTYX [Suspect]
     Active Substance: SECUKINUMAB
     Dosage: 300 MG, QMO
     Route: 058
     Dates: start: 20170728
  5. METHOTREXATE. [Concomitant]
     Active Substance: METHOTREXATE
     Indication: PRODUCT USED FOR UNKNOWN INDICATION
     Route: 065
  6. CLOBETASOL [Concomitant]
     Active Substance: CLOBETASOL
     Indication: PRODUCT USED FOR UNKNOWN INDICATION
     Route: 065
  7. COSENTYX [Suspect]
     Active Substance: SECUKINUMAB
     Dosage: 300 MG, QMO
     Route: 058
     Dates: start: 20170220
  8. COSENTYX [Suspect]
     Active Substance: SECUKINUMAB
     Dosage: 300 MG, QMO
     Route: 058
     Dates: start: 2017
  9. STELARA [Concomitant]
     Active Substance: USTEKINUMAB
     Indication: PRODUCT USED FOR UNKNOWN INDICATION
     Route: 065

REACTIONS (17)
  - Eye pain [Unknown]
  - Dysuria [Unknown]
  - Aphonia [Unknown]
  - Sinusitis [Unknown]
  - Malaise [Not Recovered/Not Resolved]
  - Rhinorrhoea [Recovering/Resolving]
  - Upper respiratory tract infection [Unknown]
  - Influenza [Unknown]
  - Fatigue [Not Recovered/Not Resolved]
  - Headache [Unknown]
  - Psoriasis [Unknown]
  - Nasopharyngitis [Unknown]
  - Pneumonia [Unknown]
  - Abdominal pain [Unknown]
  - Productive cough [Not Recovered/Not Resolved]
  - Blood urine present [Recovering/Resolving]
  - Product storage error [Unknown]

NARRATIVE: CASE EVENT DATE: 20161031
